FAERS Safety Report 16363006 (Version 2)
Quarter: 2019Q3

REPORT INFORMATION
  Report Type: Report from Study
  Country: US (occurrence: US)
  Receive Date: 20190528
  Receipt Date: 20190723
  Transmission Date: 20191004
  Serious: No
  Sender: FDA-Public Use
  Company Number: PHHY2017US120661

PATIENT
  Age: 42 Year
  Sex: Male

DRUGS (1)
  1. GILENYA [Suspect]
     Active Substance: FINGOLIMOD HYDROCHLORIDE
     Indication: MULTIPLE SCLEROSIS
     Dosage: QD
     Route: 048

REACTIONS (11)
  - Presbyopia [Unknown]
  - Alanine aminotransferase increased [Unknown]
  - Lymphocyte count decreased [Unknown]
  - Rash [Unknown]
  - Upper respiratory tract infection [Unknown]
  - Hypertension [Unknown]
  - Blood alkaline phosphatase increased [Unknown]
  - Lentigo [Unknown]
  - Melanocytic naevus [Unknown]
  - Vitamin D deficiency [Unknown]
  - Hypermetropia [Unknown]

NARRATIVE: CASE EVENT DATE: 20170524
